FAERS Safety Report 6269871-0 (Version None)
Quarter: 2009Q3

REPORT INFORMATION
  Report Type: 
  Country: None (occurrence: None)
  Receive Date: 20090716
  Receipt Date: 20090708
  Transmission Date: 20100115
  Serious: Yes (Other)
  Sender: FDA-Public Use
  Company Number: ES-ALLERGAN-0909886US

PATIENT
  Age: 65 Year
  Sex: Female
  Weight: 60 kg

DRUGS (6)
  1. RELESTAT [Suspect]
     Indication: CONJUNCTIVITIS ALLERGIC
     Dosage: UNK, UNK
     Route: 047
     Dates: start: 20090522, end: 20090501
  2. EBASTEL 10 MG COMPRIMIDOS RECUBIERTOS CON PELICULA, 20 COMPRIMIDOS [Concomitant]
     Indication: CONJUNCTIVITIS ALLERGIC
     Route: 048
  3. VISCOFRESH 0,5%, 10 VIALES DE 0,4 ML [Concomitant]
     Indication: DRY EYE
     Route: 047
  4. DIPROGENTA CREMA , 1 TUBO DE 30 G [Concomitant]
     Route: 061
  5. ENALAPRIL MALEATE [Concomitant]
     Indication: HYPERTENSION
  6. TOBRADEX COLIRIO , 1 FRASCO DE 5 ML [Concomitant]
     Route: 047

REACTIONS (1)
  - ASTHMA [None]
